FAERS Safety Report 9865910 (Version 2)
Quarter: 2014Q1

REPORT INFORMATION
  Report Type: Spontaneous
  Country: US (occurrence: US)
  Receive Date: 20140203
  Receipt Date: 20140203
  Transmission Date: 20141002
  Serious: No
  Sender: FDA-Public Use
  Company Number: US-ALLERGAN-1312300US

PATIENT
  Age: 79 Year
  Sex: Male

DRUGS (1)
  1. RESTASIS [Suspect]
     Indication: DRY EYE
     Dosage: 1 GTT, UNK
     Route: 047
     Dates: start: 20130812, end: 20130812

REACTIONS (3)
  - Palatal disorder [Recovered/Resolved]
  - Palatal disorder [Recovered/Resolved]
  - Ageusia [Recovered/Resolved]
